FAERS Safety Report 7807989-9 (Version None)
Quarter: 2011Q4

REPORT INFORMATION
  Report Type: 
  Country: None (occurrence: None)
  Receive Date: 20111011
  Receipt Date: 20111011
  Transmission Date: 20120403
  Serious: Yes (Other)
  Sender: FDA-Public Use
  Company Number: None

PATIENT
  Age: 33 Year
  Sex: Male
  Weight: 83.914 kg

DRUGS (1)
  1. DUAC [Suspect]
     Indication: ACNE
     Dosage: APPLY ON FACE
     Route: 061
     Dates: start: 20110901, end: 20111010

REACTIONS (3)
  - PENIS DISORDER [None]
  - DRY SKIN [None]
  - PENILE EXFOLIATION [None]
